FAERS Safety Report 24593449 (Version 5)
Quarter: 2024Q4

REPORT INFORMATION
  Report Type: Report from Study
  Country: FR (occurrence: FR)
  Receive Date: 20241108
  Receipt Date: 20241127
  Transmission Date: 20250115
  Serious: Yes (Other)
  Sender: NOVARTIS
  Company Number: FR-002147023-NVSC2024FR212565

PATIENT
  Age: 16 Year
  Sex: Female
  Weight: 56 kg

DRUGS (2)
  1. VIJOICE [Suspect]
     Active Substance: ALPELISIB
     Indication: Tyrosine kinase mutation
     Dosage: 250 MG, QD (2 TABLETS OF 125 MG, DAILY IN ONE INTAKE)
     Route: 048
     Dates: start: 20241005, end: 20241015
  2. VIJOICE [Suspect]
     Active Substance: ALPELISIB
     Indication: Malformation venous

REACTIONS (5)
  - Toxic skin eruption [Recovered/Resolved]
  - Rash maculo-papular [Recovered/Resolved]
  - Pruritus [Recovered/Resolved]
  - Headache [Unknown]
  - Malaise [Unknown]

NARRATIVE: CASE EVENT DATE: 20241016
